FAERS Safety Report 6501642-X (Version None)
Quarter: 2009Q4

REPORT INFORMATION
  Report Type: 
  Country: None (occurrence: None)
  Receive Date: 20091216
  Receipt Date: 20091208
  Transmission Date: 20100525
  Serious: Yes (Hospitalization)
  Sender: FDA-Public Use
  Company Number: US-ELI_LILLY_AND_COMPANY-US200912003010

PATIENT
  Age: 52 Year
  Sex: Female
  Weight: 68.027 kg

DRUGS (7)
  1. HUMULIN N [Suspect]
     Indication: DIABETES MELLITUS
     Dosage: 9 U, EACH EVENING
  2. HUMULIN 70/30 [Suspect]
     Indication: DIABETES MELLITUS
     Dosage: 9 U, EACH MORNING
  3. HUMALOG [Suspect]
     Indication: DIABETES MELLITUS
     Dosage: 8 U, DAILY (1/D)
  4. HUMULIN N [Suspect]
     Dosage: UNK, UNK
  5. HUMULIN 70/30 [Suspect]
     Dosage: 9 U, EACH MORNING
  6. HUMALOG [Suspect]
     Dosage: 8 U, OTHER
  7. HUMALOG [Suspect]
     Dosage: 8 U, OTHER

REACTIONS (9)
  - BLOOD GLUCOSE DECREASED [None]
  - FATIGUE [None]
  - FEAR [None]
  - FOOD POISONING [None]
  - INCORRECT DOSE ADMINISTERED [None]
  - INJECTION SITE HAEMORRHAGE [None]
  - NERVOUSNESS [None]
  - WEIGHT DECREASED [None]
  - WRONG TECHNIQUE IN DRUG USAGE PROCESS [None]
